FAERS Safety Report 6343437-6 (Version None)
Quarter: 2009Q3

REPORT INFORMATION
  Report Type: 
  Country: None (occurrence: None)
  Receive Date: 20090908
  Receipt Date: 20090904
  Transmission Date: 20100115
  Serious: Yes (Death, Other)
  Sender: FDA-Public Use
  Company Number: PHHY2009GB37446

PATIENT
  Sex: Male

DRUGS (2)
  1. CLOZARIL [Suspect]
     Indication: SCHIZOPHRENIA
     Dosage: UNK
     Dates: start: 20040209
  2. MIRTAZAPINE [Concomitant]

REACTIONS (4)
  - CARDIOVASCULAR DISORDER [None]
  - CHOKING [None]
  - DIABETES MELLITUS [None]
  - PNEUMONIA [None]
